FAERS Safety Report 24059347 (Version 1)
Quarter: 2024Q3

REPORT INFORMATION
  Report Type: Spontaneous
  Country: US (occurrence: US)
  Receive Date: 20240708
  Receipt Date: 20240708
  Transmission Date: 20241016
  Serious: Yes (Other)
  Sender: CSL BEHRING
  Company Number: US-BEH-2024174787

PATIENT
  Sex: Female

DRUGS (1)
  1. HIZENTRA [Suspect]
     Active Substance: HUMAN IMMUNOGLOBULIN G
     Indication: Product used for unknown indication
     Dosage: 10 G, QW
     Route: 058

REACTIONS (3)
  - Meningitis aseptic [Unknown]
  - Intracranial pressure increased [Unknown]
  - Pain [Unknown]
